FAERS Safety Report 16960025 (Version 1)
Quarter: 2019Q4

REPORT INFORMATION
  Report Type: Spontaneous
  Country: US (occurrence: US)
  Receive Date: 20191025
  Receipt Date: 20191025
  Transmission Date: 20200122
  Serious: Yes (Other)
  Sender: FDA-Public Use
  Company Number: US-SUNOVION-2019SUN004419

PATIENT

DRUGS (1)
  1. LATUDA [Suspect]
     Active Substance: LURASIDONE HYDROCHLORIDE
     Indication: BIPOLAR DISORDER
     Dosage: UNK
     Route: 048

REACTIONS (7)
  - Sunburn [Unknown]
  - Glucose tolerance impaired [Unknown]
  - Photosensitivity reaction [Unknown]
  - Weight increased [Unknown]
  - Heat stroke [Unknown]
  - Drug ineffective [Unknown]
  - Palpitations [Unknown]
